FAERS Safety Report 7505475-7 (Version None)
Quarter: 2011Q2

REPORT INFORMATION
  Report Type: 
  Country: None (occurrence: None)
  Receive Date: 20110519
  Receipt Date: 20110509
  Transmission Date: 20111010
  Serious: Yes (Hospitalization)
  Sender: FDA-Public Use
  Company Number: 2011SP021221

PATIENT
  Age: 25 Year
  Sex: Female

DRUGS (1)
  1. CERAZET (DESOGESTREL /00754001/) [Suspect]
     Indication: CONTRACEPTION
     Dosage: ;QD;
     Dates: start: 20110401, end: 20110401

REACTIONS (4)
  - NAUSEA [None]
  - HEADACHE [None]
  - BLOOD PRESSURE INADEQUATELY CONTROLLED [None]
  - VOMITING [None]
